FAERS Safety Report 10546960 (Version 3)
Quarter: 2015Q4

REPORT INFORMATION
  Report Type: Report from Study
  Country: US (occurrence: US)
  Receive Date: 20141027
  Receipt Date: 20151023
  Transmission Date: 20160304
  Serious: No
  Sender: FDA-Public Use
  Company Number: US-ABBVIE-14P-163-1280668-00

PATIENT
  Age: 52 Year
  Sex: Female

DRUGS (12)
  1. ALBUTEROL. [Concomitant]
     Active Substance: ALBUTEROL
     Indication: PRODUCT USED FOR UNKNOWN INDICATION
  2. QUINAPRIL [Concomitant]
     Active Substance: QUINAPRIL\QUINAPRIL HYDROCHLORIDE
     Dates: start: 20140912
  3. NORETHINDRONE ACETATE. [Concomitant]
     Active Substance: NORETHINDRONE ACETATE
     Indication: PRODUCT USED FOR UNKNOWN INDICATION
     Route: 048
     Dates: start: 20140902
  4. LUPRON DEPOT [Suspect]
     Active Substance: LEUPROLIDE ACETATE
     Indication: MENORRHAGIA
  5. WELLBUTRIN [Concomitant]
     Active Substance: BUPROPION HYDROCHLORIDE
     Indication: PRODUCT USED FOR UNKNOWN INDICATION
  6. RELIV [Concomitant]
     Indication: PRODUCT USED FOR UNKNOWN INDICATION
  7. HCTZ [Concomitant]
     Active Substance: HYDROCHLOROTHIAZIDE
     Indication: PRODUCT USED FOR UNKNOWN INDICATION
     Route: 065
     Dates: start: 20141009
  8. ARMOUR THYROID [Concomitant]
     Active Substance: THYROID, PORCINE\THYROID, UNSPECIFIED
     Dosage: TUESDAY, THURSDAY, SUNDAY
  9. QUINAPRIL [Concomitant]
     Active Substance: QUINAPRIL\QUINAPRIL HYDROCHLORIDE
     Indication: PRODUCT USED FOR UNKNOWN INDICATION
     Dates: end: 20140912
  10. LUPRON DEPOT [Suspect]
     Active Substance: LEUPROLIDE ACETATE
     Indication: ENDOMETRIOSIS
     Route: 065
     Dates: start: 20140804
  11. LUPRON DEPOT [Suspect]
     Active Substance: LEUPROLIDE ACETATE
     Indication: UTERINE LEIOMYOMA
  12. ARMOUR THYROID [Concomitant]
     Active Substance: THYROID, PORCINE\THYROID, UNSPECIFIED
     Indication: PRODUCT USED FOR UNKNOWN INDICATION
     Dosage: MONDAY, WEDNESDAY, FRIDAY
     Route: 065

REACTIONS (11)
  - Blood thyroid stimulating hormone increased [Unknown]
  - Abdominal distension [Not Recovered/Not Resolved]
  - Uterine enlargement [Unknown]
  - Activities of daily living impaired [Not Recovered/Not Resolved]
  - Vitamin D increased [Unknown]
  - Hot flush [Not Recovered/Not Resolved]
  - Headache [Recovered/Resolved]
  - Metrorrhagia [Recovered/Resolved]
  - Drug ineffective [Unknown]
  - Vitamin B12 increased [Unknown]
  - Blood pressure increased [Recovering/Resolving]

NARRATIVE: CASE EVENT DATE: 20140805
